FAERS Safety Report 4922611-7 (Version None)
Quarter: 2006Q1

REPORT INFORMATION
  Report Type: 
  Country: None (occurrence: None)
  Receive Date: 20060223
  Receipt Date: 20060223
  Transmission Date: 20060701
  Serious: Yes (Other)
  Sender: FDA-Public Use
  Company Number: None

PATIENT
  Sex: Female
  Weight: 96.1626 kg

DRUGS (2)
  1. MAXIDE (GENERIC) [Suspect]
     Indication: HYPERTENSION
     Dosage: QD
     Dates: start: 20050101, end: 20060101
  2. ZESTRIL [Suspect]
     Dosage: 5 QD
     Dates: start: 20010101

REACTIONS (3)
  - BLOOD PRESSURE DECREASED [None]
  - BLOOD PRESSURE INCREASED [None]
  - FEELING ABNORMAL [None]
